FAERS Safety Report 4350667-1 (Version None)
Quarter: 2004Q2

REPORT INFORMATION
  Report Type: 
  Country: None (occurrence: None)
  Receive Date: 20040427
  Receipt Date: 20040415
  Transmission Date: 20050107
  Serious: Yes (Hospitalization)
  Sender: FDA-Public Use
  Company Number: 04P-167-0257776-01

PATIENT
  Age: 56 Year
  Sex: Female
  Weight: 77 kg

DRUGS (23)
  1. HUMIRA [Suspect]
     Indication: RHEUMATOID ARTHRITIS
     Dosage: 40 MG, 1 IN 2 WK; SUBCUTANEOUS
     Route: 058
     Dates: start: 20030506
  2. METHOTREXATE [Concomitant]
  3. HYDROCHLOROQUINE [Concomitant]
  4. LEFLUNOMIDE [Concomitant]
  5. WARFARIN SODIUM [Concomitant]
  6. GLICLAZIDE [Concomitant]
  7. PREDNISOLONE [Concomitant]
  8. ASCORBIC ACID [Concomitant]
  9. FOLIC ACID [Concomitant]
  10. FUROSEMIDE [Concomitant]
  11. SALMETREROL XINAFOATE [Concomitant]
  12. BUDESONIDE [Concomitant]
  13. PARACETAMOL [Concomitant]
  14. MORPHINE SULFATE [Concomitant]
  15. CELECOXIB [Concomitant]
  16. DOMEPERIDONE [Concomitant]
  17. OMEPRAZOLE [Concomitant]
  18. CEFACLOR [Concomitant]
  19. FRUMIL [Concomitant]
  20. DEPRAMEDRONE [Concomitant]
  21. CEPHALEXIN [Concomitant]
  22. TRIAMCINOLONE ACETONIDE [Concomitant]
  23. PARACETAMOL [Concomitant]

REACTIONS (9)
  - CHEST PAIN [None]
  - DIVERTICULUM [None]
  - DIZZINESS [None]
  - FISTULA [None]
  - GROIN ABSCESS [None]
  - HAEMATURIA [None]
  - HYPERHIDROSIS [None]
  - PALPITATIONS [None]
  - VAGINAL DISCHARGE [None]
